FAERS Safety Report 13783243 (Version 2)
Quarter: 2018Q1

REPORT INFORMATION
  Report Type: Spontaneous
  Country: IT (occurrence: IT)
  Receive Date: 20170724
  Receipt Date: 20180212
  Transmission Date: 20180508
  Serious: Yes (Other)
  Sender: FDA-Public Use
  Company Number: IT-GILEAD-2017-0284033

PATIENT
  Age: 69 Year
  Sex: Male

DRUGS (3)
  1. LUCEN                              /01479302/ [Concomitant]
     Active Substance: ESOMEPRAZOLE
     Dosage: 1 DF, UNK
     Route: 048
  2. SOVALDI [Suspect]
     Active Substance: SOFOSBUVIR
     Indication: CHRONIC HEPATITIS C
     Dosage: 1 DF, QD
     Route: 048
     Dates: start: 20170517, end: 20170710
  3. DAKLINZA [Suspect]
     Active Substance: DACLATASVIR
     Indication: CHRONIC HEPATITIS C
     Dosage: 1 DF, QD
     Route: 048
     Dates: start: 20170517, end: 20170710

REACTIONS (4)
  - Suicidal ideation [Unknown]
  - Insomnia [Unknown]
  - Psychotic disorder [Unknown]
  - Restlessness [Unknown]

NARRATIVE: CASE EVENT DATE: 20170709
